FAERS Safety Report 23857838 (Version 1)
Quarter: 2024Q2

REPORT INFORMATION
  Report Type: Report from Study
  Country: US (occurrence: US)
  Receive Date: 20240515
  Receipt Date: 20240515
  Transmission Date: 20240716
  Serious: Yes (Other)
  Sender: FDA-Public Use
  Company Number: US-JNJFOC-20240520571

PATIENT
  Age: 36 Year
  Sex: Female

DRUGS (1)
  1. SPRAVATO [Suspect]
     Active Substance: ESKETAMINE
     Indication: Depression
     Dosage: ^^56 MG, 1 TOTAL DOSE^^, RECENT DOSE
     Dates: start: 20240402, end: 20240402

REACTIONS (6)
  - Hallucination [Unknown]
  - Migraine [Unknown]
  - Sleep terror [Unknown]
  - Morbid thoughts [Unknown]
  - Dissociation [Unknown]
  - Agitation [Unknown]

NARRATIVE: CASE EVENT DATE: 20240402
